FAERS Safety Report 10210359 (Version 1)
Quarter: 2014Q2

REPORT INFORMATION
  Report Type: Spontaneous
  Country: US (occurrence: US)
  Receive Date: 20140602
  Receipt Date: 20140602
  Transmission Date: 20141212
  Serious: No
  Sender: FDA-Public Use
  Company Number: US-ENDO PHARMACEUTICALS INC.-NYST20130004

PATIENT
  Sex: Female
  Weight: 103.06 kg

DRUGS (1)
  1. NYSTATIN CREAM [Suspect]
     Indication: INFECTION
     Dosage: UNK
     Route: 061

REACTIONS (1)
  - Skin infection [Not Recovered/Not Resolved]
